FAERS Safety Report 7244114-X (Version None)
Quarter: 2011Q1

REPORT INFORMATION
  Report Type: 
  Country: None (occurrence: None)
  Receive Date: 20110125
  Receipt Date: 20100915
  Transmission Date: 20110831
  Serious: No
  Sender: FDA-Public Use
  Company Number: US-MYLANLABS-2010S1017119

PATIENT
  Sex: Female

DRUGS (1)
  1. METOPROLOL TARTRATE [Suspect]
     Indication: BLOOD PRESSURE INCREASED
     Dates: end: 20100901

REACTIONS (4)
  - NAUSEA [None]
  - ALOPECIA [None]
  - MALAISE [None]
  - ABDOMINAL PAIN UPPER [None]
